FAERS Safety Report 17166546 (Version 2)
Quarter: 2019Q4

REPORT INFORMATION
  Report Type: Spontaneous
  Country: US (occurrence: US)
  Receive Date: 20191217
  Receipt Date: 20191231
  Transmission Date: 20200122
  Serious: Yes (Hospitalization, Other)
  Sender: FDA-Public Use
  Company Number: US-TEVA-2019-US-1153081

PATIENT
  Sex: Male

DRUGS (15)
  1. PREDNISONE. [Suspect]
     Active Substance: PREDNISONE
     Indication: LYMPHANGIOPATHY
  2. OCTREOTIDE. [Suspect]
     Active Substance: OCTREOTIDE
     Indication: GASTROINTESTINAL HAEMORRHAGE
     Route: 050
  3. OCTREOTIDE. [Suspect]
     Active Substance: OCTREOTIDE
     Indication: LYMPHANGIOPATHY
  4. CAFFEINE. [Concomitant]
     Active Substance: CAFFEINE
     Indication: SLEEP APNOEA SYNDROME
     Route: 048
  5. TRIMETHOPRIM-SULFAMETHOXAZOLE [Suspect]
     Active Substance: SULFAMETHOXAZOLE\TRIMETHOPRIM
     Indication: PROPHYLAXIS
  6. IMMUNOGLOBULIN (IVIG) [Suspect]
     Active Substance: HUMAN IMMUNOGLOBULIN G
     Indication: ENDOTHELIOMATOSIS
     Dosage: 2 DOSES 1G/KG/DOSE (1 DAY APART)
     Route: 042
  7. OCTREOTIDE. [Suspect]
     Active Substance: OCTREOTIDE
     Indication: ENDOTHELIOMATOSIS
     Dosage: INITIAL DOSE NOT STATED
     Route: 050
  8. IMMUNOGLOBULIN (IVIG) [Suspect]
     Active Substance: HUMAN IMMUNOGLOBULIN G
     Indication: GASTROINTESTINAL HAEMORRHAGE
  9. PREDNISONE. [Suspect]
     Active Substance: PREDNISONE
     Indication: GASTROINTESTINAL HAEMORRHAGE
  10. TRIMETHOPRIM-SULFAMETHOXAZOLE [Suspect]
     Active Substance: SULFAMETHOXAZOLE\TRIMETHOPRIM
     Indication: PNEUMOCYSTIS JIROVECII PNEUMONIA
     Dosage: ADMINISTERED WEEKLY
     Route: 065
  11. AMINOCAPROIC ACID. [Concomitant]
     Active Substance: AMINOCAPROIC ACID
     Indication: LYMPHANGIOPATHY
  12. AMINOCAPROIC ACID. [Concomitant]
     Active Substance: AMINOCAPROIC ACID
     Indication: ENDOTHELIOMATOSIS
     Route: 065
  13. PREDNISONE. [Suspect]
     Active Substance: PREDNISONE
     Indication: ENDOTHELIOMATOSIS
     Route: 048
  14. IMMUNOGLOBULIN (IVIG) [Suspect]
     Active Substance: HUMAN IMMUNOGLOBULIN G
     Indication: LYMPHANGIOPATHY
  15. AMINOCAPROIC ACID. [Concomitant]
     Active Substance: AMINOCAPROIC ACID
     Indication: GASTROINTESTINAL HAEMORRHAGE
     Dosage: GIVEN IN 4 DOSES
     Route: 048

REACTIONS (5)
  - Osteopenia [Unknown]
  - Drug ineffective [Unknown]
  - Growth retardation [Recovered/Resolved]
  - Off label use [Unknown]
  - Rib fracture [Recovered/Resolved]
